FAERS Safety Report 16895806 (Version 1)
Quarter: 2019Q4

REPORT INFORMATION
  Report Type: Spontaneous
  Country: US (occurrence: US)
  Receive Date: 20190814
  Receipt Date: 20190814
  Transmission Date: 20200122
  Serious: No
  Sender: FDA-Public Use
  Company Number: None

PATIENT

DRUGS (2)
  1. ETODOLAC. [Suspect]
     Active Substance: ETODOLAC
  2. CEFUROXIME AXETIL. [Suspect]
     Active Substance: CEFUROXIME AXETIL

REACTIONS (6)
  - Condition aggravated [None]
  - Bronchitis [None]
  - Extra dose administered [None]
  - Sinusitis [None]
  - Product dispensing error [None]
  - Product dose omission [None]
